FAERS Safety Report 16223699 (Version 10)
Quarter: 2020Q1

REPORT INFORMATION
  Report Type: Spontaneous
  Country: US (occurrence: US)
  Receive Date: 20190422
  Receipt Date: 20200117
  Transmission Date: 20200409
  Serious: Yes (Life-Threatening, Hospitalization, Other)
  Sender: FDA-Public Use
  Company Number: US-PFIZER INC-2019169095

PATIENT
  Age: 64 Year
  Sex: Female
  Weight: 74 kg

DRUGS (9)
  1. PREDNISONE. [Concomitant]
     Active Substance: PREDNISONE
     Indication: PAIN
     Dosage: 5 ML, UNK
  2. IBUPROFEN. [Concomitant]
     Active Substance: IBUPROFEN
     Indication: PAIN
     Dosage: 200 MG, UNK
  3. TRAMADOL. [Concomitant]
     Active Substance: TRAMADOL
     Indication: PAIN
     Dosage: UNK (2 TRAMADOL IN THE MORNING, TRAMADOL IN THE AFTERNOON)
  4. XELJANZ XR [Suspect]
     Active Substance: TOFACITINIB CITRATE
     Indication: ARTHROPATHY
     Dosage: 11 MG, 1X/DAY
     Route: 048
  5. XELJANZ XR [Suspect]
     Active Substance: TOFACITINIB CITRATE
     Indication: INFLAMMATION
  6. MOTRIN [Concomitant]
     Active Substance: IBUPROFEN
     Indication: PAIN
     Dosage: 1200 MG, DAILY (3 MOTRIN IN THE MORNING, 3 MOTRIN AT NIGHT SO A TOTAL OF 1200 MG)
  7. MOTRIN [Concomitant]
     Active Substance: IBUPROFEN
     Dosage: UNK (4 OF THEM IN THE MORNING 4 OF THEM IN THE AFTER, 4 OF THEM AT DINNER TIME)
  8. PREDNISONE. [Concomitant]
     Active Substance: PREDNISONE
     Indication: PAIN
     Dosage: 10 MG, UNK
  9. BENAZEPRIL [Concomitant]
     Active Substance: BENAZEPRIL HYDROCHLORIDE
     Indication: HYPERTENSION
     Dosage: UNK

REACTIONS (11)
  - Pyrexia [Unknown]
  - White blood cell count decreased [Unknown]
  - Haemoglobin decreased [Unknown]
  - Pain [Not Recovered/Not Resolved]
  - Platelet count decreased [Unknown]
  - Suicidal ideation [Unknown]
  - Therapeutic product effect incomplete [Unknown]
  - Influenza [Unknown]
  - Viral infection [Recovered/Resolved]
  - Back pain [Not Recovered/Not Resolved]
  - Feeling abnormal [Unknown]
